FAERS Safety Report 22612669 (Version 1)
Quarter: 2023Q2

REPORT INFORMATION
  Report Type: Spontaneous
  Country: IT (occurrence: IT)
  Receive Date: 20230617
  Receipt Date: 20230617
  Transmission Date: 20230722
  Serious: Yes (Hospitalization)
  Sender: FDA-Public Use
  Company Number: None

PATIENT
  Age: 9 Year
  Sex: Male
  Weight: 19 kg

DRUGS (9)
  1. TOPIRAMATE [Suspect]
     Active Substance: TOPIRAMATE
     Indication: Product used for unknown indication
     Dosage: 25 MG, QD (TOPIRAMATO 12.5 MG PER 2 VOLTE/DIE)
     Route: 048
  2. FUROSEMIDE [Suspect]
     Active Substance: FUROSEMIDE
     Indication: Product used for unknown indication
     Dosage: UNK (LASIX 5 MG AL BISOGNO (SOMMINISTRATI 10 MG IL 01/06, 5 MG IL 02-03-04-05-06/06))
     Route: 051
  3. OMEPRAZOLE [Suspect]
     Active Substance: OMEPRAZOLE
     Indication: Product used for unknown indication
     Dosage: 20 MG, QD (OMEPRAZOLO 20 MG/DIE)
     Route: 051
  4. AMIODARONE [Suspect]
     Active Substance: AMIODARONE
     Indication: Product used for unknown indication
     Dosage: 100 MG, QD (AMIODARONE 100 MG/DIE)
     Route: 048
  5. VALPROATE SODIUM [Suspect]
     Active Substance: VALPROATE SODIUM
     Indication: Product used for unknown indication
     Dosage: 500 MG, QD (DEPAKIN BUSTINE: 250 MG X 2 VOLTE/DIE)
     Route: 048
  6. DAPTOMYCIN [Suspect]
     Active Substance: DAPTOMYCIN
     Indication: Product used for unknown indication
     Dosage: 140 MG, QD (DAPTOMICINA 140 MG/DIE (PREVISTO FINO AL 09/06))
     Route: 051
  7. CLOBAZAM [Suspect]
     Active Substance: CLOBAZAM
     Indication: Product used for unknown indication
     Dosage: UNK (CLOBAZAM 2.5 MG + 5 MG /DIE)
     Route: 048
  8. ASPIRIN DL-LYSINE [Suspect]
     Active Substance: ASPIRIN DL-LYSINE
     Indication: Product used for unknown indication
     Dosage: 75 MG, QD (CARDIRENE 75 MG/DIE)
     Route: 048
  9. MEROPENEM [Suspect]
     Active Substance: MEROPENEM
     Indication: Product used for unknown indication
     Dosage: 1.8 G, QD (MERREM 600 MG X 3 VOLTE/DIE (PREVISTO FINO AL 07/06))
     Route: 051

REACTIONS (1)
  - Oliguria [Not Recovered/Not Resolved]

NARRATIVE: CASE EVENT DATE: 20230528
